FAERS Safety Report 5467617-7 (Version None)
Quarter: 2007Q3

REPORT INFORMATION
  Report Type: 
  Country: None (occurrence: None)
  Receive Date: 20070921
  Receipt Date: 20070914
  Transmission Date: 20080115
  Serious: Yes (Hospitalization)
  Sender: FDA-Public Use
  Company Number: 2007-03086

PATIENT
  Age: 66 Year
  Sex: Male
  Weight: 78.9 kg

DRUGS (6)
  1. VELCADE [Suspect]
     Indication: MULTIPLE MYELOMA
  2. ASPIRIN [Concomitant]
  3. AVANDIA [Concomitant]
  4. EFFEXOR [Concomitant]
  5. HYDROCHLOROTHIAZIDE [Concomitant]
  6. LIPITOR [Concomitant]

REACTIONS (1)
  - RENAL TUBULAR NECROSIS [None]
